FAERS Safety Report 9618066 (Version 2)
Quarter: 2013Q4

REPORT INFORMATION
  Report Type: Spontaneous
  Country: AU (occurrence: AU)
  Receive Date: 20131012
  Receipt Date: 20131012
  Transmission Date: 20140711
  Serious: Yes (Hospitalization, Other)
  Sender: FDA-Public Use
  Company Number: PHHY2013AU104816

PATIENT
  Age: 24 Year
  Sex: Female

DRUGS (2)
  1. VALPROIC ACID [Suspect]
     Indication: EPILEPSY
     Dosage: 200 MG, BID
  2. DOXEPIN [Interacting]
     Indication: DEPRESSION
     Dosage: 450 MG, DAILY

REACTIONS (8)
  - Epilepsy [Recovered/Resolved]
  - Loss of consciousness [Unknown]
  - Agitation [Unknown]
  - Encephalopathy [Unknown]
  - Confusional state [Unknown]
  - Anxiety [Unknown]
  - Emotional distress [Unknown]
  - Restlessness [Unknown]
